FAERS Safety Report 6590280-9 (Version None)
Quarter: 2010Q1

REPORT INFORMATION
  Report Type: 
  Country: None (occurrence: None)
  Receive Date: 20100219
  Receipt Date: 20100212
  Transmission Date: 20100710
  Serious: Yes (Other)
  Sender: FDA-Public Use
  Company Number: US-ASTRAZENECA-2010SE06621

PATIENT
  Sex: Female

DRUGS (3)
  1. NEXIUM [Suspect]
     Indication: DYSPEPSIA
     Route: 048
  2. PLAVIX [Concomitant]
  3. OTHER HEART MEDICATIONS [Concomitant]

REACTIONS (4)
  - DRUG DOSE OMISSION [None]
  - DYSPEPSIA [None]
  - FEELING ABNORMAL [None]
  - MYOCARDIAL INFARCTION [None]
